FAERS Safety Report 4763641-8 (Version None)
Quarter: 2005Q3

REPORT INFORMATION
  Report Type: 
  Country: None (occurrence: None)
  Receive Date: 20050908
  Receipt Date: 20050715
  Transmission Date: 20060218
  Serious: Yes (Other)
  Sender: FDA-Public Use
  Company Number: 200512118JP

PATIENT
  Age: 24 Year
  Sex: Female

DRUGS (3)
  1. ALLEGRA [Suspect]
  2. ONON [Concomitant]
     Dosage: DOSE: 4 CAPSULES
  3. TEGRETOL [Concomitant]

REACTIONS (1)
  - CONVULSION [None]
